FAERS Safety Report 6186849-6 (Version None)
Quarter: 2009Q2

REPORT INFORMATION
  Report Type: 
  Country: None (occurrence: None)
  Receive Date: 20090512
  Receipt Date: 20090501
  Transmission Date: 20091009
  Serious: Yes (Hospitalization)
  Sender: FDA-Public Use
  Company Number: JP-JNJFOC-20080404439

PATIENT
  Sex: Male
  Weight: 65 kg

DRUGS (11)
  1. PREZISTA [Suspect]
     Indication: HIV INFECTION
     Route: 048
  2. ZERIT [Suspect]
     Indication: HIV INFECTION
     Route: 048
  3. NORVIR [Suspect]
     Indication: HIV INFECTION
     Route: 048
  4. STOCRIN [Suspect]
     Indication: HIV INFECTION
     Route: 048
  5. KALETRA [Suspect]
     Route: 048
  6. KALETRA [Suspect]
     Indication: HIV INFECTION
     Dosage: 4 DF
     Route: 048
  7. ISENTRESS [Suspect]
     Indication: HIV INFECTION
     Route: 048
  8. RETROVIR [Concomitant]
     Indication: HIV INFECTION
     Route: 048
  9. EPIVIR [Concomitant]
     Indication: HIV INFECTION
     Route: 048
  10. ACTOS [Concomitant]
     Indication: DIABETES MELLITUS
     Route: 048
  11. ADVATE [Concomitant]
     Indication: HAEMOPHILIA

REACTIONS (3)
  - ARTHRITIS [None]
  - BLOOD GLUCOSE INCREASED [None]
  - HYPERLIPIDAEMIA [None]
